FAERS Safety Report 21177760 (Version 7)
Quarter: 2023Q1

REPORT INFORMATION
  Report Type: Spontaneous
  Country: US (occurrence: US)
  Receive Date: 20220805
  Receipt Date: 20230110
  Transmission Date: 20230417
  Serious: Yes (Other)
  Sender: FDA-Public Use
  Company Number: US-PFIZER INC-202201033005

PATIENT
  Age: 78 Year
  Sex: Female
  Weight: 66.5 kg

DRUGS (4)
  1. IBRANCE [Suspect]
     Active Substance: PALBOCICLIB
     Indication: Breast cancer female
     Dosage: 125 MG, DAILY
     Route: 048
     Dates: start: 202205, end: 2022
  2. IBRANCE [Suspect]
     Active Substance: PALBOCICLIB
     Indication: Breast cancer metastatic
     Dosage: 100 MG
  3. IBRANCE [Suspect]
     Active Substance: PALBOCICLIB
     Dosage: 125 MG, CYCLIC (DAILY X 21DAYS)
     Route: 048
     Dates: start: 20220517, end: 20221202
  4. FASLODEX [Concomitant]
     Active Substance: FULVESTRANT
     Indication: Breast cancer metastatic
     Dosage: UNK
     Route: 030
     Dates: start: 20220517, end: 20221202

REACTIONS (12)
  - Neuropathy peripheral [Unknown]
  - Dizziness [Recovering/Resolving]
  - Stomatitis [Recovered/Resolved]
  - Product dispensing issue [Unknown]
  - Incorrect dose administered [Unknown]
  - Alopecia [Not Recovered/Not Resolved]
  - Limb discomfort [Unknown]
  - Anxiety [Unknown]
  - Crying [Unknown]
  - Emotional distress [Unknown]
  - Brachial plexopathy [Unknown]
  - COVID-19 [Unknown]

NARRATIVE: CASE EVENT DATE: 20220101
